FAERS Safety Report 8609329-4 (Version None)
Quarter: 2012Q3

REPORT INFORMATION
  Report Type: 
  Country: None (occurrence: None)
  Receive Date: 20120821
  Receipt Date: 20120817
  Transmission Date: 20120928
  Serious: Yes (Death, Other)
  Sender: FDA-Public Use
  Company Number: PHHY2012GB071355

PATIENT
  Sex: Female

DRUGS (2)
  1. CARBIDOPA AND LEVODOPA [Suspect]
     Indication: PARKINSONISM
     Dosage: UNK
  2. CARBIDOPA AND LEVODOPA [Suspect]
     Dosage: 125 MG, TID

REACTIONS (5)
  - MOTOR DYSFUNCTION [None]
  - DRUG EFFECT DECREASED [None]
  - HALLUCINATION, VISUAL [None]
  - DEATH [None]
  - CONFUSIONAL STATE [None]
